FAERS Safety Report 22881861 (Version 3)
Quarter: 2024Q1

REPORT INFORMATION
  Report Type: Report from Study
  Country: US (occurrence: US)
  Receive Date: 20230830
  Receipt Date: 20240124
  Transmission Date: 20240410
  Serious: Yes (Other)
  Sender: FDA-Public Use
  Company Number: US-ABBVIE-5384776

PATIENT
  Sex: Female
  Weight: 75 kg

DRUGS (13)
  1. SKYRIZI [Suspect]
     Active Substance: RISANKIZUMAB-RZAA
     Indication: Psoriasis
     Dosage: FORM STRENGTH: 150 MG?LAST ADMIN DATE: 2022
     Route: 058
     Dates: start: 202202
  2. SKYRIZI [Suspect]
     Active Substance: RISANKIZUMAB-RZAA
     Dosage: FORM STRENGTH: 150 MG WEEK 4
     Route: 058
     Dates: start: 202111, end: 202111
  3. SKYRIZI [Suspect]
     Active Substance: RISANKIZUMAB-RZAA
     Dosage: WEEK 0  FORM STRENGTH: 150 MG
     Route: 058
     Dates: start: 202110, end: 202110
  4. SKYRIZI [Suspect]
     Active Substance: RISANKIZUMAB-RZAA
     Dosage: FORM STRENGTH: 150 MG
     Route: 058
     Dates: start: 20220804
  5. KEPPRA [Concomitant]
     Active Substance: LEVETIRACETAM
     Indication: Seizure
     Dosage: FORM STRENGTH: 500 MILLIGRAM
  6. MYCOSTATIN [Concomitant]
     Active Substance: NYSTATIN
     Indication: Rash
     Dosage: POWDER AS NEEDED
     Route: 061
  7. BUSPIRONE [Concomitant]
     Active Substance: BUSPIRONE HYDROCHLORIDE
     Indication: Anxiety
     Dosage: FORM STRENGTH: 5 MG
  8. LINAGLIPTIN [Concomitant]
     Active Substance: LINAGLIPTIN
     Indication: Diabetes mellitus
     Dosage: FORM STRENGTH: 5 MILLIGRAM
  9. CARVEDILOL [Concomitant]
     Active Substance: CARVEDILOL
     Indication: Blood pressure measurement
     Dosage: FORM STRENGTH: 12.5 MG
  10. ATORVASTATIN [Concomitant]
     Active Substance: ATORVASTATIN
     Indication: Blood cholesterol
     Dosage: FORM STRENGTH: 10 MG
  11. FERROUS SULFATE [Concomitant]
     Active Substance: FERROUS SULFATE
     Indication: Mineral supplementation
     Dosage: FORM STRENGTH: 325 MILLIGRAM
  12. PANTOPRAZOLE [Concomitant]
     Active Substance: PANTOPRAZOLE
     Indication: Dyspepsia
     Dosage: FORM STRENGTH: 40 MILLIGRAM
  13. PROCRIT [Concomitant]
     Active Substance: ERYTHROPOIETIN
     Indication: Haemoglobin abnormal
     Dosage: START DATE TEXT: 8-10 MONTHS

REACTIONS (10)
  - Aortic stenosis [Not Recovered/Not Resolved]
  - Surgery [Unknown]
  - Psoriasis [Not Recovered/Not Resolved]
  - Aortic arteriosclerosis [Not Recovered/Not Resolved]
  - Anxiety [Unknown]
  - Alopecia [Recovering/Resolving]
  - Papule [Unknown]
  - Pain of skin [Unknown]
  - Venous stenosis [Not Recovered/Not Resolved]
  - Stress [Unknown]

NARRATIVE: CASE EVENT DATE: 20230101
